FAERS Safety Report 8610999-5 (Version None)
Quarter: 2012Q3

REPORT INFORMATION
  Report Type: 
  Country: None (occurrence: None)
  Receive Date: 20120822
  Receipt Date: 20120813
  Transmission Date: 20120928
  Serious: Yes (Hospitalization)
  Sender: FDA-Public Use
  Company Number: US-JNJFOC-20120808264

PATIENT
  Sex: Female
  Weight: 24.7 kg

DRUGS (5)
  1. ANTIBIOTICS [Concomitant]
  2. PROBIOTICS [Concomitant]
  3. REMICADE [Suspect]
     Indication: COLITIS ULCERATIVE
     Route: 042
     Dates: start: 20120122
  4. MESALAMINE [Concomitant]
  5. PREDNISONE TAB [Concomitant]

REACTIONS (3)
  - HYPONATRAEMIA [None]
  - DEHYDRATION [None]
  - COLITIS ULCERATIVE [None]
